FAERS Safety Report 9559332 (Version 2)
Quarter: 2014Q1

REPORT INFORMATION
  Report Type: Spontaneous
  Country: US (occurrence: None)
  Receive Date: 20130906
  Receipt Date: 20131205
  Transmission Date: 20141002
  Serious: Yes (Other)
  Sender: FDA-Public Use
  Company Number: 163-POMAL-13071471

PATIENT
  Age: 71 Year
  Sex: Female

DRUGS (1)
  1. POMALYST [Suspect]
     Indication: PLASMA CELL MYELOMA
     Dosage: 2 MG, 21 IN 21 D
     Route: 048
     Dates: start: 20130702

REACTIONS (5)
  - Erythema [None]
  - Fatigue [None]
  - Pruritus [None]
  - Hepatic enzyme increased [None]
  - Rash macular [None]
